FAERS Safety Report 16571973 (Version 1)
Quarter: 2019Q3

REPORT INFORMATION
  Report Type: Report from Study
  Country: JP (occurrence: JP)
  Receive Date: 20190715
  Receipt Date: 20190715
  Transmission Date: 20191004
  Serious: Yes (Other)
  Sender: FDA-Public Use
  Company Number: JP-PFIZER INC-2019300351

PATIENT

DRUGS (3)
  1. 5-FLUOROURACIL [FLUOROURACIL] [Suspect]
     Active Substance: FLUOROURACIL
     Indication: COLORECTAL CANCER METASTATIC
     Dosage: 500 MG/M2, CYCLIC (DAYS 1 AND 8 EVERY 3 WEEKS.)
     Route: 040
  2. LEVOLEUCOVORIN CALCIUM. [Suspect]
     Active Substance: LEVOLEUCOVORIN CALCIUM
     Indication: COLORECTAL CANCER METASTATIC
     Dosage: 10 MG/M2, CYCLIC (INFUSION ON DAYS 1 AND 8 EVERY 3 WEEKS)
     Route: 042
  3. IRINOTECAN HCL [Suspect]
     Active Substance: IRINOTECAN HYDROCHLORIDE
     Indication: COLORECTAL CANCER METASTATIC
     Dosage: 100 MG/M2, CYCLIC ( 90-MIN INFUSION)
     Route: 042

REACTIONS (1)
  - Hepatic function abnormal [Recovered/Resolved]
